FAERS Safety Report 12238243 (Version 1)
Quarter: 2016Q2

REPORT INFORMATION
  Report Type: Spontaneous
  Country: AR (occurrence: AR)
  Receive Date: 20160405
  Receipt Date: 20160405
  Transmission Date: 20160815
  Serious: Yes (Other)
  Sender: FDA-Public Use
  Company Number: AR-PFIZER INC-2016188029

PATIENT
  Age: 78 Year
  Sex: Female

DRUGS (1)
  1. XELJANZ [Suspect]
     Active Substance: TOFACITINIB CITRATE
     Indication: RHEUMATOID ARTHRITIS
     Dosage: 5 MG, 2X/DAY
     Dates: start: 20150303

REACTIONS (2)
  - Lymphoma [Not Recovered/Not Resolved]
  - Joint dislocation [Recovered/Resolved]

NARRATIVE: CASE EVENT DATE: 201602
